FAERS Safety Report 4956729-X (Version None)
Quarter: 2006Q1

REPORT INFORMATION
  Report Type: 
  Country: None (occurrence: None)
  Receive Date: 20060329
  Receipt Date: 20060320
  Transmission Date: 20060701
  Serious: Yes (Other)
  Sender: FDA-Public Use
  Company Number: 13304084

PATIENT
  Age: 31 Year
  Sex: Female

DRUGS (3)
  1. LAMIVUDINE [Suspect]
     Indication: HIV INFECTION
     Dates: start: 20041015
  2. STAVUDINE [Suspect]
     Indication: HIV INFECTION
     Dates: start: 20041015
  3. NEVIRAPINE [Suspect]
     Indication: HIV INFECTION
     Dates: start: 20041015

REACTIONS (1)
  - GAMMA-GLUTAMYLTRANSFERASE INCREASED [None]
